FAERS Safety Report 20263734 (Version 1)
Quarter: 2021Q4

REPORT INFORMATION
  Report Type: Spontaneous
  Country: US (occurrence: US)
  Receive Date: 20211231
  Receipt Date: 20211231
  Transmission Date: 20220303
  Serious: Yes (Other)
  Sender: FDA-Public Use
  Company Number: US-CELGENE-USA-20211208879

PATIENT
  Sex: Female
  Weight: 71.278 kg

DRUGS (1)
  1. REVLIMID [Suspect]
     Active Substance: LENALIDOMIDE
     Indication: Plasma cell myeloma
     Dosage: 25 MILLIGRAM
     Route: 048
     Dates: start: 20200127

REACTIONS (5)
  - Neuropathy peripheral [Unknown]
  - Anxiety [Unknown]
  - Hepatic enzyme increased [Unknown]
  - Dry eye [Unknown]
  - Dyspepsia [Unknown]
